FAERS Safety Report 7595049-4 (Version None)
Quarter: 2011Q3

REPORT INFORMATION
  Report Type: 
  Country: None (occurrence: None)
  Receive Date: 20110707
  Receipt Date: 20110621
  Transmission Date: 20111222
  Serious: No
  Sender: FDA-Public Use
  Company Number: US-B.I. PHARMACEUTICALS,INC./RIDGEFIELD-2011-BP-10069BP

PATIENT
  Age: 91 Year
  Sex: Female

DRUGS (2)
  1. PRADAXA [Suspect]
     Indication: ATRIAL FIBRILLATION
     Route: 048
     Dates: start: 20110301
  2. PEPCID [Concomitant]
     Indication: GASTRITIS

REACTIONS (6)
  - FEELING ABNORMAL [None]
  - ABDOMINAL DISCOMFORT [None]
  - HAEMORRHOIDS [None]
  - DIZZINESS [None]
  - ABDOMINAL PAIN UPPER [None]
  - VISUAL ACUITY REDUCED [None]
